FAERS Safety Report 20083186 (Version 2)
Quarter: 2021Q4

REPORT INFORMATION
  Report Type: Spontaneous
  Country: DE (occurrence: DE)
  Receive Date: 20211117
  Receipt Date: 20211123
  Transmission Date: 20220303
  Serious: Yes (Hospitalization)
  Sender: FDA-Public Use
  Company Number: DE-ADRED-07243-04

PATIENT
  Age: 87 Year
  Sex: Female

DRUGS (13)
  1. APIXABAN [Suspect]
     Active Substance: APIXABAN
     Indication: Product used for unknown indication
     Dosage: 2.5 MG, 1-0-1-0
  2. TORSEMIDE [Concomitant]
     Active Substance: TORSEMIDE
     Dosage: 50 MG, 1-0-0-0
  3. BISOPROLOL [Concomitant]
     Active Substance: BISOPROLOL
     Dosage: 2.5 MG, 1-0-1-0
  4. PANTOPRAZOLE [Concomitant]
     Active Substance: PANTOPRAZOLE
     Dosage: 20 MG, 1-0-0-0
  5. ROSUVASTATIN [Concomitant]
     Active Substance: ROSUVASTATIN
     Dosage: 5 MG, 0-0-1-0
  6. PARAFFIN [Concomitant]
     Active Substance: PARAFFIN
     Dosage: 20-0-20-0
  7. SERTRALIN                          /01011401/ [Concomitant]
     Dosage: 50 MG, 1-0-0-0
  8. METAMIZOL                          /06276701/ [Concomitant]
     Dosage: 500 MG, 1-1-1-1
  9. MAGNESIUM CITRATE [Concomitant]
     Active Substance: MAGNESIUM CITRATE
     Dosage: 150 MG, 1-0-1-0
  10. XIPAMIDE [Concomitant]
     Active Substance: XIPAMIDE
     Dosage: 10 MG, 0-1-0-0
  11. ALENDRONATE SODIUM [Concomitant]
     Active Substance: ALENDRONATE SODIUM
     Dosage: 70 MILLIGRAM, SCHEMA
  12. KALIUM                             /00031401/ [Concomitant]
     Dosage: SCHEMA
  13. MIRTAZAPINE [Concomitant]
     Active Substance: MIRTAZAPINE
     Dosage: 15 MG, 0-0-0-1

REACTIONS (4)
  - Renal impairment [Unknown]
  - General physical health deterioration [Unknown]
  - Anaemia [Unknown]
  - Spontaneous haemorrhage [Unknown]
